FAERS Safety Report 19452903 (Version 1)
Quarter: 2021Q2

REPORT INFORMATION
  Report Type: Report from Study
  Country: US (occurrence: US)
  Receive Date: 20210623
  Receipt Date: 20210623
  Transmission Date: 20210717
  Serious: Yes (Other)
  Sender: FDA-Public Use
  Company Number: US-EMD SERONO-E2B_80015507

PATIENT
  Age: 71 Year
  Sex: Female
  Weight: 95 kg

DRUGS (3)
  1. REBIF [Suspect]
     Active Substance: INTERFERON BETA-1A
     Route: 058
     Dates: start: 20170626
  2. REBIF [Suspect]
     Active Substance: INTERFERON BETA-1A
     Indication: MULTIPLE SCLEROSIS
     Route: 058
     Dates: start: 20030130
  3. REBIF [Suspect]
     Active Substance: INTERFERON BETA-1A
     Route: 058
     Dates: start: 202009

REACTIONS (18)
  - Injection site discomfort [Not Recovered/Not Resolved]
  - Fibromyalgia [Unknown]
  - Fatigue [Unknown]
  - Rheumatoid arthritis [Unknown]
  - Loss of personal independence in daily activities [Not Recovered/Not Resolved]
  - Injection site pain [Unknown]
  - Neuritis [Unknown]
  - Pain [Not Recovered/Not Resolved]
  - Nausea [Unknown]
  - Muscle spasms [Recovering/Resolving]
  - Asthenia [Unknown]
  - Frustration tolerance decreased [Unknown]
  - Multiple sclerosis relapse [Unknown]
  - Injection site bruising [Recovered/Resolved]
  - Influenza like illness [Not Recovered/Not Resolved]
  - Injection site erythema [Recovered/Resolved]
  - Influenza [Unknown]
  - Crying [Not Recovered/Not Resolved]

NARRATIVE: CASE EVENT DATE: 201801
